FAERS Safety Report 5342805-9 (Version None)
Quarter: 2007Q2

REPORT INFORMATION
  Report Type: 
  Country: None (occurrence: None)
  Receive Date: 20070601
  Receipt Date: 20070529
  Transmission Date: 20071010
  Serious: Yes (Death, Other)
  Sender: FDA-Public Use
  Company Number: BR-MERCK-0705BRA00063

PATIENT
  Sex: Female

DRUGS (2)
  1. CASPOFUNGIN ACETATE [Suspect]
     Route: 041
  2. [THERAPY UNSPECIFIED] [Concomitant]
     Route: 065

REACTIONS (2)
  - CONDITION AGGRAVATED [None]
  - HEPATIC ENZYME INCREASED [None]
